FAERS Safety Report 24319313 (Version 1)
Quarter: 2024Q3

REPORT INFORMATION
  Report Type: Spontaneous
  Country: US (occurrence: US)
  Receive Date: 20240914
  Receipt Date: 20240914
  Transmission Date: 20241016
  Serious: Yes (Hospitalization, Other)
  Sender: MALLINCKRODT
  Company Number: US-MALLINCKRODT-MNK202405565

PATIENT
  Sex: Female
  Weight: 248 kg

DRUGS (3)
  1. CORTICOTROPIN [Suspect]
     Active Substance: CORTICOTROPIN
     Indication: Psoriatic arthropathy
     Dosage: 80 UNITS
     Route: 058
  2. BIOTIN [Concomitant]
     Active Substance: BIOTIN
     Dosage: UNKNOWN
  3. SKYRIZI [Concomitant]
     Active Substance: RISANKIZUMAB-RZAA
     Dosage: UNKNOWN

REACTIONS (4)
  - Hospitalisation [Unknown]
  - Near death experience [Unknown]
  - Cushing^s syndrome [Unknown]
  - Blood potassium decreased [Unknown]
